FAERS Safety Report 7680350-6 (Version None)
Quarter: 2011Q3

REPORT INFORMATION
  Report Type: 
  Country: None (occurrence: None)
  Receive Date: 20110812
  Receipt Date: 20110623
  Transmission Date: 20111222
  Serious: Yes (Other)
  Sender: FDA-Public Use
  Company Number: GB-GLAXOSMITHKLINE-B0730336A

PATIENT
  Age: 22 Year
  Sex: Female

DRUGS (1)
  1. BECLOMETHASONE DIPROPIONATE [Suspect]
     Indication: ASTHMA
     Dosage: 200MCG TWICE PER DAY
     Route: 055
     Dates: start: 20110622, end: 20110623

REACTIONS (4)
  - ERYTHEMA [None]
  - SWELLING [None]
  - RASH GENERALISED [None]
  - HYPERSENSITIVITY [None]
